FAERS Safety Report 14088565 (Version 1)
Quarter: 2017Q4

REPORT INFORMATION
  Report Type: Report from Study
  Country: BR (occurrence: BR)
  Receive Date: 20171013
  Receipt Date: 20171013
  Transmission Date: 20180321
  Serious: Yes (Other)
  Sender: FDA-Public Use
  Company Number: PHHY2017BR134645

PATIENT
  Sex: Female
  Weight: 68 kg

DRUGS (2)
  1. COSENTYX [Suspect]
     Active Substance: SECUKINUMAB
     Indication: PSORIATIC ARTHROPATHY
     Dosage: 300 MG, QMO
     Route: 058
  2. COSENTYX [Suspect]
     Active Substance: SECUKINUMAB
     Indication: PSORIASIS
     Dosage: 300 MG, QW
     Route: 058
     Dates: start: 20170906

REACTIONS (12)
  - Wrong technique in device usage process [Unknown]
  - Incorrect dose administered [Unknown]
  - Overweight [Recovering/Resolving]
  - Pain of skin [Unknown]
  - Pain [Recovering/Resolving]
  - Pain in extremity [Not Recovered/Not Resolved]
  - Labyrinthitis [Unknown]
  - Drug effect incomplete [Unknown]
  - Stress [Unknown]
  - Malaise [Unknown]
  - Psoriasis [Unknown]
  - Skin fissures [Not Recovered/Not Resolved]
